FAERS Safety Report 9572804 (Version 2)
Quarter: 2013Q4

REPORT INFORMATION
  Report Type: Spontaneous
  Country: US (occurrence: US)
  Receive Date: 20131001
  Receipt Date: 20131001
  Transmission Date: 20140711
  Serious: No
  Sender: FDA-Public Use
  Company Number: US-PURDUE-USA-2012-0081757

PATIENT
  Age: 55 Year
  Sex: Male
  Weight: 112.47 kg

DRUGS (2)
  1. BUTRANS [Suspect]
     Indication: ARTHRALGIA
     Dosage: 10 MCG, Q1H
     Route: 062
     Dates: start: 20111220
  2. OXYCODONE HYDROCHLORIDE (SIMILAR TO NDA 22-272) [Concomitant]
     Indication: PRODUCT USED FOR UNKNOWN INDICATION
     Dosage: 5 MG, UNK

REACTIONS (2)
  - Therapeutic response unexpected [Recovered/Resolved]
  - Blood pressure decreased [Recovered/Resolved]
